FAERS Safety Report 5035791-2 (Version None)
Quarter: 2006Q2

REPORT INFORMATION
  Report Type: 
  Country: None (occurrence: None)
  Receive Date: 20060526
  Receipt Date: 20060420
  Transmission Date: 20061013
  Serious: No
  Sender: FDA-Public Use
  Company Number: FABR-11502

PATIENT
  Age: 48 Year
  Sex: Male
  Weight: 70.3075 kg

DRUGS (8)
  1. FABRAZYME [Suspect]
     Indication: FABRY'S DISEASE
     Dosage: 70 MG Q2WKS IV
     Route: 042
     Dates: start: 20050801
  2. FABRAZYME [Suspect]
     Indication: FABRY'S DISEASE
     Dosage: 35 MG ONCE  IV
     Route: 042
     Dates: start: 20050810, end: 20050810
  3. FABRAZYME [Suspect]
     Indication: FABRY'S DISEASE
     Dosage: 70 MG Q2WKS  IV
     Route: 042
     Dates: start: 20050715, end: 20050729
  4. FABRAZYME [Suspect]
     Indication: FABRY'S DISEASE
     Dosage: 1 MG/KG Q2WKS  IV
     Route: 042
     Dates: start: 20020819, end: 20050623
  5. ALTACE [Concomitant]
  6. HYDROXYZINE [Concomitant]
  7. TYLENOL (CAPLET) [Concomitant]
  8. UNSPECIFIED ANTI-HYPERTENSIVE MEDICATION [Concomitant]

REACTIONS (1)
  - DYSURIA [None]
